FAERS Safety Report 12957211 (Version 1)
Quarter: 2016Q4

REPORT INFORMATION
  Report Type: Spontaneous
  Country: US (occurrence: US)
  Receive Date: 20161118
  Receipt Date: 20161118
  Transmission Date: 20170207
  Serious: Yes (Other)
  Sender: FDA-Public Use
  Company Number: US-BAYER-2016-219107

PATIENT
  Age: 59 Year
  Sex: Female

DRUGS (18)
  1. LYRICA [Suspect]
     Active Substance: PREGABALIN
     Indication: NEUROPATHY PERIPHERAL
     Dosage: 1 DF, TID
  2. NASONEX [Concomitant]
     Active Substance: MOMETASONE FUROATE
     Indication: NASAL CONGESTION
     Dosage: 1-2 SPRAYS DAILY
     Route: 045
     Dates: start: 20150119
  3. PROTONIX [Suspect]
     Active Substance: PANTOPRAZOLE SODIUM
     Dosage: 1 DF, QD
     Route: 048
     Dates: start: 20130819
  4. NASONEX [Concomitant]
     Active Substance: MOMETASONE FUROATE
     Indication: HYPERSENSITIVITY
  5. CANAGLIFLOZIN [Concomitant]
     Active Substance: CANAGLIFLOZIN
     Dosage: 1 DF, QD
  6. CLARITIN [Suspect]
     Active Substance: LORATADINE
     Indication: NASOPHARYNGITIS
  7. LEVEMIR [Concomitant]
     Active Substance: INSULIN DETEMIR
     Dosage: 40 UNITS DAILY
     Route: 058
  8. CLARITIN [Suspect]
     Active Substance: LORATADINE
     Indication: HYPERSENSITIVITY
  9. NORVASC [Suspect]
     Active Substance: AMLODIPINE BESYLATE
     Dosage: UNK
  10. NASONEX [Concomitant]
     Active Substance: MOMETASONE FUROATE
     Indication: NASOPHARYNGITIS
  11. NOVOLOG [Concomitant]
     Active Substance: INSULIN ASPART
     Dosage: 15 UNITS PRIOR TO BREAKFAST AND DINNER
  12. BAYER GENUINE ASPIRIN [Suspect]
     Active Substance: ASPIRIN
     Dosage: UNK
  13. CLARITIN [Suspect]
     Active Substance: LORATADINE
     Indication: NASAL CONGESTION
     Dosage: 1 DF, QD
     Dates: start: 20160315
  14. MELOXICAM. [Concomitant]
     Active Substance: MELOXICAM
     Indication: SCIATICA
     Dosage: 1 DF, QD
     Route: 048
  15. MEDROXYPROGESTERONE ACETATE. [Concomitant]
     Active Substance: MEDROXYPROGESTERONE ACETATE
     Dosage: 1 DF, QD
     Route: 048
  16. LYRICA [Suspect]
     Active Substance: PREGABALIN
     Indication: NEUROPATHY PERIPHERAL
     Dosage: 1 DF, QD
     Route: 048
  17. VITAMIN D3 [Concomitant]
     Active Substance: CHOLECALCIFEROL
     Dosage: 1 DF, QD
  18. BENICAR [Concomitant]
     Active Substance: OLMESARTAN MEDOXOMIL
     Dosage: 1 DF, QD
     Route: 048
     Dates: start: 20160519

REACTIONS (20)
  - Diabetes mellitus inadequate control [None]
  - Intervertebral disc degeneration [None]
  - Arthralgia [None]
  - Hypertension [None]
  - Carpal tunnel syndrome [None]
  - Cataract [None]
  - Rhinitis allergic [None]
  - Menometrorrhagia [None]
  - Drug hypersensitivity [Unknown]
  - Gastrooesophageal reflux disease [None]
  - Joint contracture [None]
  - Tooth erosion [None]
  - Sciatica [None]
  - Plantar fasciitis [None]
  - Hyperlipidaemia [None]
  - Seborrhoeic keratosis [None]
  - Pelvic pain [None]
  - Dysmenorrhoea [None]
  - Obesity [None]
  - Diabetic neuropathy [None]
